FAERS Safety Report 19816216 (Version 13)
Quarter: 2022Q3

REPORT INFORMATION
  Report Type: Report from Study
  Country: PL (occurrence: PL)
  Receive Date: 20210910
  Receipt Date: 20220719
  Transmission Date: 20221027
  Serious: Yes (Death, Life-Threatening, Hospitalization, Other)
  Sender: FDA-Public Use
  Company Number: PL-BRISTOL-MYERS SQUIBB COMPANY-BMS-2021-090695

PATIENT
  Age: 69 Year
  Sex: Male
  Weight: 83 kg

DRUGS (14)
  1. SODIUM CHLORIDE [Concomitant]
     Active Substance: SODIUM CHLORIDE
     Indication: Nausea
     Dosage: 1 DOSAGE FORM = 500 UNITS NOS
     Route: 042
     Dates: start: 20210826, end: 20210826
  2. SODIUM CHLORIDE [Concomitant]
     Active Substance: SODIUM CHLORIDE
     Indication: Dizziness
  3. NEBIVOLOL [Concomitant]
     Active Substance: NEBIVOLOL
     Indication: Product used for unknown indication
     Route: 048
     Dates: start: 2011
  4. TRAMADOL [Concomitant]
     Active Substance: TRAMADOL
     Indication: Product used for unknown indication
     Route: 048
     Dates: start: 2021
  5. ACETAMINOPHEN [Concomitant]
     Active Substance: ACETAMINOPHEN
     Indication: Product used for unknown indication
     Route: 048
     Dates: start: 2021
  6. KARBICOMBI [Concomitant]
     Indication: Product used for unknown indication
     Route: 048
     Dates: start: 2011
  7. ESTAZOLAM [Concomitant]
     Active Substance: ESTAZOLAM
     Indication: Product used for unknown indication
     Route: 048
     Dates: start: 2021
  8. INDAPAMIDE [Concomitant]
     Active Substance: INDAPAMIDE
     Indication: Product used for unknown indication
     Route: 048
     Dates: start: 2011
  9. PANTOPRAZOLE SODIUM [Concomitant]
     Active Substance: PANTOPRAZOLE SODIUM
     Indication: Product used for unknown indication
     Route: 048
     Dates: start: 2011
  10. ALLOPURINOL [Concomitant]
     Active Substance: ALLOPURINOL
     Indication: Product used for unknown indication
     Route: 048
     Dates: start: 2011
  11. CLOBETASOL [Concomitant]
     Active Substance: CLOBETASOL
     Indication: Vasculitis
     Route: 062
     Dates: start: 20210729, end: 20210825
  12. ATOSSA [Concomitant]
     Indication: Nausea
     Route: 042
     Dates: start: 20210826, end: 20210826
  13. ATOSSA [Concomitant]
     Indication: Dizziness
  14. GLUCOPHAGE [Concomitant]
     Active Substance: METFORMIN HYDROCHLORIDE
     Indication: Product used for unknown indication
     Route: 048
     Dates: start: 2011

REACTIONS (6)
  - Acute kidney injury [Fatal]
  - Cardiac failure [Fatal]
  - Anaemia [Not Recovered/Not Resolved]
  - Cardiac arrest [Recovered/Resolved]
  - Sepsis [Not Recovered/Not Resolved]
  - Thrombocytopenia [Not Recovered/Not Resolved]

NARRATIVE: CASE EVENT DATE: 20210907
